FAERS Safety Report 16400348 (Version 1)
Quarter: 2019Q2

REPORT INFORMATION
  Report Type: Spontaneous
  Country: FR (occurrence: FR)
  Receive Date: 20190606
  Receipt Date: 20190606
  Transmission Date: 20190711
  Serious: Yes (Other)
  Sender: FDA-Public Use
  Company Number: FR-ELI_LILLY_AND_COMPANY-FR201905014354

PATIENT
  Age: 66 Year
  Sex: Male
  Weight: 79 kg

DRUGS (1)
  1. UMULINE [Suspect]
     Active Substance: INSULIN HUMAN
     Indication: DIABETES MELLITUS
     Dosage: 6 ML, UNKNOWN
     Route: 042
     Dates: start: 20190404

REACTIONS (2)
  - Product preparation error [Recovered/Resolved]
  - Hypoglycaemia [Recovered/Resolved]

NARRATIVE: CASE EVENT DATE: 20190404
